FAERS Safety Report 11239076 (Version 2)
Quarter: 2015Q3

REPORT INFORMATION
  Report Type: Spontaneous
  Country: CA (occurrence: None)
  Receive Date: 20150630
  Receipt Date: 20150730
  Transmission Date: 20151125
  Serious: Yes (Hospitalization, Other)
  Sender: FDA-Public Use
  Company Number: CO-PL-CA-2015-015

PATIENT
  Sex: Male

DRUGS (4)
  1. INH  (ISONIAZID) [Concomitant]
     Active Substance: ISONIAZID
  2. SULFASALAZINE (SULFASALAZINE) [Concomitant]
     Active Substance: SULFASALAZINE
  3. ARAVA [Suspect]
     Active Substance: LEFLUNOMIDE
     Indication: PRODUCT USED FOR UNKNOWN INDICATION
     Route: 048
     Dates: start: 201411
  4. PLAQUENIL [Suspect]
     Active Substance: HYDROXYCHLOROQUINE SULFATE
     Indication: PRODUCT USED FOR UNKNOWN INDICATION
     Route: 048
     Dates: start: 201411

REACTIONS (9)
  - Therapeutic response decreased [None]
  - Pulmonary fibrosis [None]
  - Lung infection [None]
  - Tuberculin test positive [None]
  - Influenza like illness [None]
  - Pneumonia [None]
  - Arthralgia [None]
  - Cough [None]
  - Joint swelling [None]

NARRATIVE: CASE EVENT DATE: 20150419
